FAERS Safety Report 9289253 (Version 1)
Quarter: 2013Q2

REPORT INFORMATION
  Report Type: Spontaneous
  Country: US (occurrence: US)
  Receive Date: 20130514
  Receipt Date: 20130514
  Transmission Date: 20140414
  Serious: No
  Sender: FDA-Public Use
  Company Number: US-ABBOTT-12P-163-0962872-00

PATIENT
  Age: 39 Year
  Sex: Female
  Weight: 115.77 kg

DRUGS (4)
  1. PROGESTERONE [Suspect]
     Indication: UTERINE POLYP
     Dosage: AT BEDTIME
     Route: 048
     Dates: start: 201112, end: 20120131
  2. PROGESTERONE [Suspect]
     Indication: UTERINE HAEMORRHAGE
     Dosage: AT BEDTIME
     Route: 048
     Dates: start: 20120201, end: 20120531
  3. PROGESTERONE [Suspect]
     Dosage: AT BEDTIME
     Route: 048
     Dates: start: 20120601, end: 20120715
  4. PROGESTERONE [Suspect]
     Dosage: AT BEDTIME
     Route: 048
     Dates: start: 20120601, end: 20120715

REACTIONS (4)
  - Capsule physical issue [Unknown]
  - Uterine haemorrhage [Recovered/Resolved]
  - Somnolence [Not Recovered/Not Resolved]
  - Abdominal distension [Recovered/Resolved]
